FAERS Safety Report 5409488-0 (Version None)
Quarter: 2007Q3

REPORT INFORMATION
  Report Type: 
  Country: None (occurrence: None)
  Receive Date: 20070809
  Receipt Date: 20070807
  Transmission Date: 20080115
  Serious: Yes (Hospitalization, Other)
  Sender: FDA-Public Use
  Company Number: PHNR2007AU01458

PATIENT
  Age: 77 Year
  Sex: Female

DRUGS (6)
  1. INDOCIN [Suspect]
  2. NAPROSYN [Suspect]
  3. TAGAMET [Concomitant]
     Dosage: 400 MG, DAILY
  4. PROTHIADEN [Concomitant]
     Dosage: 100 MG, DAILY
  5. SERENACE [Concomitant]
     Dosage: 2 UNK, DAILY
     Route: 048
  6. VOLTAREN [Suspect]
     Dosage: 100 MG, DAILY

REACTIONS (10)
  - ABDOMINAL PAIN [None]
  - DUODENAL ULCER [None]
  - MALAISE [None]
  - MELAENA [None]
  - PALLOR [None]
  - PERIPHERAL ISCHAEMIA [None]
  - PYLOROPLASTY [None]
  - SOMNOLENCE [None]
  - TRANSFUSION [None]
  - VAGOTOMY [None]
